FAERS Safety Report 5813791-X (Version None)
Quarter: 2008Q3

REPORT INFORMATION
  Report Type: 
  Country: None (occurrence: None)
  Receive Date: 20080717
  Receipt Date: 20080708
  Transmission Date: 20090109
  Serious: Yes (Hospitalization)
  Sender: FDA-Public Use
  Company Number: ES-AVENTIS-200816070GDDC

PATIENT
  Age: 9 Year
  Sex: Female

DRUGS (2)
  1. FLAGYL [Suspect]
     Route: 042
     Dates: start: 20080429, end: 20080502
  2. CEFUROXIME [Suspect]
     Route: 042
     Dates: start: 20080429, end: 20080502

REACTIONS (5)
  - DIARRHOEA [None]
  - DOUGLAS' ABSCESS [None]
  - DRUG INEFFECTIVE [None]
  - NAUSEA [None]
  - NO THERAPEUTIC RESPONSE [None]
